FAERS Safety Report 9007116 (Version 2)
Quarter: 2014Q2

REPORT INFORMATION
  Report Type: Spontaneous
  Country: AT (occurrence: AT)
  Receive Date: 20130110
  Receipt Date: 20140529
  Transmission Date: 20141212
  Serious: Yes (Hospitalization, Other)
  Sender: FDA-Public Use
  Company Number: PHHY2013AT001627

PATIENT
  Age: 26 Year
  Sex: Male
  Weight: 115 kg

DRUGS (1)
  1. FUROSEMIDE [Suspect]
     Dosage: 80 MG, TWO DOSES
     Route: 048

REACTIONS (18)
  - Weight decreased [Recovered/Resolved]
  - Hypokalaemia [Recovered/Resolved]
  - Fatigue [Recovered/Resolved]
  - Palpitations [Recovered/Resolved]
  - Paralysis [Recovered/Resolved]
  - Sinus tachycardia [Unknown]
  - Fall [Recovered/Resolved]
  - Muscle spasms [Recovered/Resolved]
  - Nocturia [Recovered/Resolved]
  - Intentional product misuse [Unknown]
  - Hyperlactacidaemia [Unknown]
  - Blood lactate dehydrogenase increased [Unknown]
  - Hyperglycaemia [Recovered/Resolved]
  - Emotional distress [Unknown]
  - Chills [Unknown]
  - Aspartate aminotransferase increased [Unknown]
  - Alanine aminotransferase increased [Unknown]
  - Blood creatine phosphokinase increased [Unknown]
